FAERS Safety Report 4418562-7 (Version None)
Quarter: 2004Q3

REPORT INFORMATION
  Report Type: 
  Country: None (occurrence: None)
  Receive Date: 20040809
  Receipt Date: 20040602
  Transmission Date: 20050211
  Serious: No
  Sender: FDA-Public Use
  Company Number: US-GLAXOSMITHKLINE-A0513630A

PATIENT
  Sex: Female

DRUGS (2)
  1. PAXIL CR [Suspect]
     Route: 048
  2. WELLBUTRIN [Concomitant]

REACTIONS (1)
  - GALACTORRHOEA [None]
